FAERS Safety Report 8509362-7 (Version None)
Quarter: 2012Q3

REPORT INFORMATION
  Report Type: 
  Country: None (occurrence: None)
  Receive Date: 20120713
  Receipt Date: 20120711
  Transmission Date: 20120928
  Serious: No
  Sender: FDA-Public Use
  Company Number: US-009507513-1207USA002692

PATIENT

DRUGS (2)
  1. SINGULAIR [Suspect]
     Dosage: UNK, UNKNOWN
  2. PROVENTIL [Suspect]
     Indication: ASTHMA
     Dosage: 2 DF, QD, INHALATION

REACTIONS (2)
  - THROAT IRRITATION [None]
  - COUGH [None]
